FAERS Safety Report 18490485 (Version 1)
Quarter: 2020Q4

REPORT INFORMATION
  Report Type: Spontaneous
  Country: DE (occurrence: DE)
  Receive Date: 20201111
  Receipt Date: 20201111
  Transmission Date: 20210114
  Serious: Yes (Other)
  Sender: FDA-Public Use
  Company Number: DE-TEVA-2020-DE-1846220

PATIENT
  Age: 12 Year
  Sex: Female

DRUGS (3)
  1. DENOSUMAB [Suspect]
     Active Substance: DENOSUMAB
     Indication: BONE GIANT CELL TUMOUR
     Dosage: ON DAYS 1, 8, 15, 28, AND THEN ONCE A MONTH
     Route: 065
     Dates: start: 201412, end: 201512
  2. FUROSEMIDE. [Suspect]
     Active Substance: FUROSEMIDE
     Indication: HYPERCALCAEMIA
     Route: 065
  3. PREDNISOLONE. [Suspect]
     Active Substance: PREDNISOLONE
     Indication: HYPERCALCAEMIA
     Dosage: .25 MG/KG DAILY;
     Route: 065

REACTIONS (2)
  - Cushing^s syndrome [Unknown]
  - Treatment failure [Unknown]
